FAERS Safety Report 4835432-0 (Version None)
Quarter: 2005Q4

REPORT INFORMATION
  Report Type: 
  Country: None (occurrence: None)
  Receive Date: 20051123
  Receipt Date: 20051104
  Transmission Date: 20060501
  Serious: Yes (Death, Hospitalization)
  Sender: FDA-Public Use
  Company Number: JP-SP-2005-02355

PATIENT
  Age: 80 Year
  Sex: Male

DRUGS (2)
  1. IMMUCYST [Suspect]
     Indication: BLADDER CANCER
     Route: 043
     Dates: start: 20050921, end: 20051019
  2. IMMUCYST [Suspect]
     Route: 043
     Dates: start: 20050921, end: 20051019

REACTIONS (5)
  - ARTHRITIS [None]
  - COUGH [None]
  - INTERSTITIAL LUNG DISEASE [None]
  - LYMPHOCYTE STIMULATION TEST POSITIVE [None]
  - RESPIRATORY FAILURE [None]
